FAERS Safety Report 4320986-3 (Version None)
Quarter: 2004Q1

REPORT INFORMATION
  Report Type: 
  Country: None (occurrence: None)
  Receive Date: 20040318
  Receipt Date: 20040304
  Transmission Date: 20041129
  Serious: Yes (Death, Other)
  Sender: FDA-Public Use
  Company Number: 2003IM000961

PATIENT
  Age: 68 Year
  Sex: Female

DRUGS (17)
  1. ADVAFERON (A643_INTERFERON ALFACON-1) [Suspect]
     Indication: HEPATITIS C
     Dosage: 12 MU; QD; SUBCUTANEOUS
     Route: 058
     Dates: end: 20030127
  2. NORVASC [Suspect]
     Dosage: ORAL
     Route: 048
     Dates: end: 20030217
  3. DOXAZOSIN MESYLATE [Suspect]
     Dosage: ORAL
     Route: 048
     Dates: end: 20030217
  4. DIOVAN [Suspect]
     Dosage: ORAL
     Route: 048
     Dates: end: 20030203
  5. ALLOPURINOL [Suspect]
     Dosage: ORAL
     Route: 048
     Dates: end: 20030127
  6. LIPOVAS (BEING QUERIED) [Suspect]
     Dosage: ORAL
     Route: 048
     Dates: end: 20030203
  7. ADALAT [Suspect]
     Dosage: ORAL
     Route: 048
     Dates: end: 20030203
  8. PL (BEING QUERIED) [Suspect]
     Dosage: ORAL
     Route: 048
  9. LEVOFLOXACIN [Suspect]
     Dosage: ORAL
     Route: 048
  10. MUCODYNE (CARBOCISTEINE) [Suspect]
     Dosage: ORAL
     Route: 048
  11. GUANABENZ ACETATE [Suspect]
     Dates: end: 20030203
  12. DIART (AZOSEMIDE) [Suspect]
     Dates: end: 20030203
  13. HUSTAZOL (CLOPERASTINE HYDROCHLORIDE) [Suspect]
  14. MARZULENE (SODIUM GUALENATE) [Suspect]
  15. PERSANTIN [Suspect]
     Dates: end: 20030203
  16. LENDORM [Suspect]
  17. VOLTAREN [Suspect]

REACTIONS (5)
  - GENERALISED ERYTHEMA [None]
  - LIP EROSION [None]
  - RESPIRATORY FAILURE [None]
  - TOXIC EPIDERMAL NECROLYSIS [None]
  - VIRAL INFECTION [None]
